FAERS Safety Report 5405268-0 (Version None)
Quarter: 2007Q3

REPORT INFORMATION
  Report Type: 
  Country: None (occurrence: None)
  Receive Date: 20070803
  Receipt Date: 20070727
  Transmission Date: 20080115
  Serious: Yes (Other)
  Sender: FDA-Public Use
  Company Number: A0666547A

PATIENT
  Sex: Female

DRUGS (7)
  1. ADVAIR DISKUS 100/50 [Suspect]
     Indication: CHRONIC OBSTRUCTIVE PULMONARY DISEASE
     Dosage: 1PUFF TWICE PER DAY
     Route: 055
     Dates: start: 20060601
  2. SPIRIVA [Concomitant]
  3. COMBIVENT [Concomitant]
  4. FOSAMAX [Concomitant]
  5. LIPITOR [Concomitant]
  6. EVISTA [Concomitant]
  7. QUINAPRIL HCL [Concomitant]

REACTIONS (4)
  - APHASIA [None]
  - DRUG INEFFECTIVE [None]
  - DYSPHONIA [None]
  - SPEECH DISORDER [None]
